FAERS Safety Report 17644599 (Version 1)
Quarter: 2020Q2

REPORT INFORMATION
  Report Type: Spontaneous
  Country: US (occurrence: US)
  Receive Date: 20200408
  Receipt Date: 20200408
  Transmission Date: 20200713
  Serious: Yes (Hospitalization)
  Sender: FDA-Public Use
  Company Number: None

PATIENT
  Age: 62 Year
  Sex: Female

DRUGS (2)
  1. PROCRIT [Suspect]
     Active Substance: ERYTHROPOIETIN
     Indication: BREAST CANCER FEMALE
     Dosage: ?          OTHER STRENGTH:20000 UNIT/ML;OTHER FREQUENCY:EVERY 2-4 WEEKS;?
     Route: 058
     Dates: start: 20200131
  2. IBRANCE [Suspect]
     Active Substance: PALBOCICLIB
     Indication: BREAST CANCER FEMALE
     Route: 048
     Dates: start: 20180125

REACTIONS (1)
  - Renal disorder [None]

NARRATIVE: CASE EVENT DATE: 20200330
